FAERS Safety Report 14869058 (Version 2)
Quarter: 2018Q4

REPORT INFORMATION
  Report Type: Spontaneous
  Country: US (occurrence: US)
  Receive Date: 20180509
  Receipt Date: 20181030
  Transmission Date: 20190204
  Serious: No
  Sender: FDA-Public Use
  Company Number: US-BRISTOL-MYERS SQUIBB COMPANY-BMS-2018-042165

PATIENT
  Sex: Male
  Weight: 81.19 kg

DRUGS (3)
  1. OPDIVO [Suspect]
     Active Substance: NIVOLUMAB
     Indication: BLADDER CANCER STAGE IV
     Dosage: UNK, Q2WK
     Route: 042
     Dates: start: 201803
  2. DEXLANSOPRAZOLE [Concomitant]
     Active Substance: DEXLANSOPRAZOLE
     Indication: PRODUCT USED FOR UNKNOWN INDICATION
     Dosage: 60 MG, UNK
     Route: 065
  3. POLYETHYLENE GLYCOL [Concomitant]
     Active Substance: POLYETHYLENE GLYCOLS
     Indication: PRODUCT USED FOR UNKNOWN INDICATION
     Dosage: DAILY
     Route: 065

REACTIONS (10)
  - Fatigue [Not Recovered/Not Resolved]
  - Amnesia [Not Recovered/Not Resolved]
  - Product use in unapproved indication [Unknown]
  - Abdominal distension [Not Recovered/Not Resolved]
  - Pruritus [Not Recovered/Not Resolved]
  - Diarrhoea [Not Recovered/Not Resolved]
  - Gait disturbance [Not Recovered/Not Resolved]
  - Gastrointestinal disorder [Not Recovered/Not Resolved]
  - Overweight [Not Recovered/Not Resolved]
  - Bowel movement irregularity [Not Recovered/Not Resolved]
